FAERS Safety Report 23231902 (Version 1)
Quarter: 2023Q4

REPORT INFORMATION
  Report Type: Spontaneous
  Country: US (occurrence: None)
  Receive Date: 20231126
  Receipt Date: 20231126
  Transmission Date: 20240109
  Serious: Yes (Hospitalization)
  Sender: FDA-Public Use
  Company Number: None

PATIENT
  Age: 41 Year
  Sex: Female
  Weight: 80.1 kg

DRUGS (9)
  1. OZEMPIC [Suspect]
     Active Substance: SEMAGLUTIDE
     Indication: Glucose tolerance impaired
     Dosage: OTHER QUANTITY : 1 INJECTION(S);?OTHER FREQUENCY : 1 WEEK;?OTHER ROUTE : INJECTION;?
     Route: 050
     Dates: start: 20231110, end: 20231117
  2. ALBUTEROL [Concomitant]
     Active Substance: ALBUTEROL
  3. SYMBICORT [Concomitant]
     Active Substance: BUDESONIDE\FORMOTEROL FUMARATE DIHYDRATE
  4. BACLOFEN [Concomitant]
     Active Substance: BACLOFEN
  5. PROTONIX [Concomitant]
     Active Substance: PANTOPRAZOLE SODIUM
  6. CLARITIN [Concomitant]
     Active Substance: LORATADINE
  7. lo lo fe [Concomitant]
  8. VITAMIN B12 [Concomitant]
     Active Substance: CYANOCOBALAMIN
  9. super c [Concomitant]

REACTIONS (11)
  - Duodenogastric reflux [None]
  - Abdominal distension [None]
  - Vomiting [None]
  - Diarrhoea [None]
  - Drug ineffective [None]
  - Insomnia [None]
  - Oropharyngeal pain [None]
  - Nausea [None]
  - Rectal haemorrhage [None]
  - Proctalgia [None]
  - Glycosylated haemoglobin increased [None]

NARRATIVE: CASE EVENT DATE: 20231117
